FAERS Safety Report 20110563 (Version 1)
Quarter: 2021Q4

REPORT INFORMATION
  Report Type: Spontaneous
  Country: US (occurrence: US)
  Receive Date: 20211124
  Receipt Date: 20211124
  Transmission Date: 20220303
  Serious: Yes (Other)
  Sender: FDA-Public Use
  Company Number: US-NOVOPROD-841303

PATIENT
  Age: 55 Year
  Sex: Female
  Weight: 108.86 kg

DRUGS (19)
  1. NOVOLOG [Suspect]
     Active Substance: INSULIN ASPART
     Indication: Diabetes mellitus
     Dosage: UNK
     Route: 058
  2. ALPHA LIPOIC ACID [Suspect]
     Active Substance: .ALPHA.-LIPOIC ACID
     Indication: Burning mouth syndrome
     Dosage: 600 MG, QD
     Route: 048
  3. ALPHA LIPOIC ACID [Suspect]
     Active Substance: .ALPHA.-LIPOIC ACID
     Dosage: 900 MG, QD
     Route: 048
     Dates: start: 20210601
  4. ALPHA LIPOIC ACID [Suspect]
     Active Substance: .ALPHA.-LIPOIC ACID
     Indication: Diabetes mellitus
     Dosage: 300 MG, QD
     Route: 048
     Dates: end: 20210430
  5. LEVEMIR [Concomitant]
     Active Substance: INSULIN DETEMIR
     Indication: Diabetes mellitus
     Dosage: 45 IU, QD
     Route: 058
  6. COPAXONE [Concomitant]
     Active Substance: GLATIRAMER ACETATE
     Indication: Product used for unknown indication
     Dosage: 40 MG, TIW
     Route: 065
  7. MYCOPHENOLIC ACID [Concomitant]
     Active Substance: MYCOPHENOLIC ACID
     Indication: Product used for unknown indication
     Dosage: 500 MG, QD
     Route: 065
  8. VITAMIN D NOS [Concomitant]
     Active Substance: VITAMIN D NOS
     Indication: Nutritional supplementation
     Dosage: 4000 IU, QD
     Route: 065
     Dates: start: 2008
  9. CYANOCOBALAMIN [Concomitant]
     Active Substance: CYANOCOBALAMIN
     Indication: Nutritional supplementation
     Dosage: ONE DROPPERFUL PER DAY
     Route: 060
     Dates: start: 2008
  10. DIETARY SUPPLEMENT\RESVERATROL [Concomitant]
     Active Substance: DIETARY SUPPLEMENT\RESVERATROL
     Indication: Nutritional supplementation
     Dosage: ONE PER DAY
     Route: 048
     Dates: start: 2008
  11. CINNAMON [CINNAMOMUM BURMANNI;CINNAMOMUM SPP.] [Concomitant]
     Indication: Nutritional supplementation
     Dosage: ONCE PER DAY
     Route: 065
  12. GELATIN [Concomitant]
     Active Substance: GELATIN
     Indication: Nutritional supplementation
     Dosage: ONCE PER DAY
     Route: 065
  13. FLAXSEED OIL [LINUM USITATISSIMUM OIL] [Concomitant]
     Indication: Nutritional supplementation
     Dosage: ONCE PER DAY
     Route: 048
     Dates: start: 2008
  14. VITAMIN B-COMPLEX [VITAMIN B COMPLEX] [Concomitant]
     Indication: Nutritional supplementation
     Dosage: ONCE PER DAY
     Route: 048
  15. ZINC [Concomitant]
     Active Substance: ZINC
     Indication: Nutritional supplementation
     Dosage: ONCE PER DAY
     Route: 048
     Dates: start: 2008
  16. CALCIUM\VITAMIN D [Concomitant]
     Active Substance: CALCIUM\VITAMIN D
     Indication: Nutritional supplementation
     Dosage: 600 MG CALCIUM AND 25 MCG VITAMIN D3 THREE TIMES PER WEEK
     Route: 048
     Dates: start: 2008
  17. BACLOFEN [Concomitant]
     Active Substance: BACLOFEN
     Indication: Product used for unknown indication
     Dosage: 20 MG
     Route: 048
     Dates: start: 2001
  18. TRAVATAN [Concomitant]
     Active Substance: TRAVOPROST
     Indication: Product used for unknown indication
     Dosage: ONE DROP IN EACH EYE
     Route: 065
  19. TYLENOL [Concomitant]
     Active Substance: ACETAMINOPHEN
     Indication: Product used for unknown indication
     Dosage: PRN
     Route: 065

REACTIONS (1)
  - Hypersensitivity [Unknown]

NARRATIVE: CASE EVENT DATE: 20210430
